FAERS Safety Report 15476433 (Version 2)
Quarter: 2018Q4

REPORT INFORMATION
  Report Type: Report from Study
  Country: US (occurrence: US)
  Receive Date: 20181009
  Receipt Date: 20181210
  Transmission Date: 20190205
  Serious: No
  Sender: FDA-Public Use
  Company Number: PHEH2018US041136

PATIENT
  Age: 48 Year
  Sex: Female

DRUGS (3)
  1. GILENYA [Suspect]
     Active Substance: FINGOLIMOD HYDROCHLORIDE
     Dosage: 0.5 MG, QW3 (ONCE DAILY MONDAY, WEDNESDAY, FRIDAY)
     Route: 048
     Dates: start: 201801
  2. GILENYA [Suspect]
     Active Substance: FINGOLIMOD HYDROCHLORIDE
     Indication: MULTIPLE SCLEROSIS
     Dosage: 0.5 MG, QD
     Route: 048
  3. GILENYA [Suspect]
     Active Substance: FINGOLIMOD HYDROCHLORIDE
     Dosage: 3 TIMES A WEEK AS ORDERED BY HCP (MONDAY, WEDNESDAY, FRIDAY)
     Route: 065
     Dates: start: 201808

REACTIONS (4)
  - Prescribed underdose [Unknown]
  - Pain in extremity [Unknown]
  - Limb discomfort [Unknown]
  - Liver function test decreased [Unknown]

NARRATIVE: CASE EVENT DATE: 20181122
